FAERS Safety Report 9401836 (Version 1)
Quarter: 2013Q3

REPORT INFORMATION
  Report Type: Spontaneous
  Country: FR (occurrence: FR)
  Receive Date: 20130716
  Receipt Date: 20130716
  Transmission Date: 20140515
  Serious: Yes (Hospitalization, Other)
  Sender: FDA-Public Use
  Company Number: FR-JNJFOC-20130705852

PATIENT
  Age: 23 Year
  Sex: Female

DRUGS (2)
  1. XARELTO [Suspect]
     Indication: PRODUCT USED FOR UNKNOWN INDICATION
     Route: 048
     Dates: start: 20130527, end: 20130601
  2. PREVISCAN (FLUINDIONE) [Concomitant]
     Route: 065
     Dates: end: 20130601

REACTIONS (1)
  - Pulmonary embolism [Recovered/Resolved]
